FAERS Safety Report 14220705 (Version 5)
Quarter: 2018Q1

REPORT INFORMATION
  Report Type: Spontaneous
  Country: NO (occurrence: NO)
  Receive Date: 20171124
  Receipt Date: 20180302
  Transmission Date: 20180508
  Serious: Yes (Hospitalization, Disabling, Other)
  Sender: FDA-Public Use
  Company Number: NO-009507513-1711NOR007621

PATIENT
  Age: 37 Year
  Sex: Female

DRUGS (2)
  1. NEXPLANON [Suspect]
     Active Substance: ETONOGESTREL
     Indication: CONTRACEPTION
     Dosage: 1 IMPLANT
     Route: 058
     Dates: start: 20170525, end: 20171108
  2. ZYRTEC [Concomitant]
     Active Substance: CETIRIZINE HYDROCHLORIDE
     Indication: RHINITIS ALLERGIC
     Dosage: PER ORAL, TAKEN WHEN NEEDED
     Route: 048
     Dates: start: 20170428

REACTIONS (10)
  - Generalised oedema [Recovering/Resolving]
  - Breast tenderness [Recovered/Resolved]
  - Joint swelling [Recovered/Resolved]
  - Administration site pain [Recovered/Resolved]
  - Arthralgia [Recovering/Resolving]
  - Arthralgia [Recovered/Resolved]
  - Fatigue [Recovered/Resolved]
  - General physical health deterioration [Recovered/Resolved]
  - Wheelchair user [Recovered/Resolved]
  - Polyuria [Unknown]

NARRATIVE: CASE EVENT DATE: 2017
